FAERS Safety Report 25140068 (Version 1)
Quarter: 2025Q1

REPORT INFORMATION
  Report Type: Spontaneous
  Country: US (occurrence: US)
  Receive Date: 20250331
  Receipt Date: 20250331
  Transmission Date: 20250408
  Serious: Yes (Life-Threatening, Hospitalization)
  Sender: MYLAN
  Company Number: US-MYLANLABS-2025M1026060

PATIENT
  Age: 40 Year
  Sex: Male

DRUGS (1)
  1. ARMODAFINIL [Suspect]
     Active Substance: ARMODAFINIL
     Indication: Obstructive sleep apnoea syndrome

REACTIONS (5)
  - Cardiomyopathy [Recovering/Resolving]
  - Ventricular fibrillation [Unknown]
  - Cardiac arrest [Unknown]
  - Arteriospasm coronary [Unknown]
  - Aspiration [Unknown]
